FAERS Safety Report 6012512-8 (Version None)
Quarter: 2008Q4

REPORT INFORMATION
  Report Type: 
  Country: None (occurrence: None)
  Receive Date: 20081218
  Receipt Date: 20081212
  Transmission Date: 20090506
  Serious: Yes (Hospitalization, Other)
  Sender: FDA-Public Use
  Company Number: US-ROXANE LABORATORIES, INC.-2008-RO-00413RO

PATIENT
  Age: 65 Year
  Sex: Male

DRUGS (7)
  1. LITHIUM CARBONATE [Suspect]
     Dosage: 900MG
  2. LORAZEPAM [Suspect]
     Dosage: 1MG
  3. ZOLPIDEM [Suspect]
     Dosage: 10MG
  4. PAROXETINE HCL [Suspect]
     Dosage: 50MG
  5. PREGABALIN [Concomitant]
     Dosage: 150MG
  6. PREGABALIN [Concomitant]
     Dosage: 300MG
  7. CLORAZEPATE DIPOTASSIUM [Concomitant]
     Dosage: 30MG

REACTIONS (4)
  - ANXIETY [None]
  - DEPRESSIVE SYMPTOM [None]
  - SOCIAL PHOBIA [None]
  - TREMOR [None]
